FAERS Safety Report 4265678-4 (Version None)
Quarter: 2004Q1

REPORT INFORMATION
  Report Type: 
  Country: None (occurrence: None)
  Receive Date: 20040107
  Receipt Date: 20031226
  Transmission Date: 20041129
  Serious: Yes (Life-Threatening)
  Sender: FDA-Public Use
  Company Number: JP-GLAXOSMITHKLINE-B0318579A

PATIENT
  Age: 21 Year
  Sex: Female

DRUGS (3)
  1. PAROXETINE [Suspect]
     Indication: ANXIETY DISORDER
     Dosage: 30MG PER DAY
     Route: 048
     Dates: start: 20030616, end: 20031218
  2. BROTIZOLAM [Concomitant]
     Route: 048
  3. ZOLPIDEM TARTRATE [Concomitant]

REACTIONS (1)
  - ELECTROCARDIOGRAM QT PROLONGED [None]
